FAERS Safety Report 8299849-7 (Version None)
Quarter: 2012Q2

REPORT INFORMATION
  Report Type: 
  Country: None (occurrence: None)
  Receive Date: 20120419
  Receipt Date: 20120327
  Transmission Date: 20120825
  Serious: Yes (Other)
  Sender: FDA-Public Use
  Company Number: MX-BAXTER-2012BAX001428

PATIENT
  Sex: Female

DRUGS (8)
  1. CALCIUM CARBONATE [Concomitant]
     Route: 048
  2. DIANEAL_2.5% PD2_SOLUTION FOR PERITONEAL DIALYSIS_BAG, PVC [Suspect]
     Indication: RENAL FAILURE CHRONIC
     Route: 033
  3. FUROSEMIDE [Concomitant]
     Route: 048
  4. FOLIC ACID [Concomitant]
     Route: 048
  5. CALCITRIOL [Concomitant]
  6. VITAMIN B COMPLEX CAP [Concomitant]
     Route: 048
  7. EPOGEN [Concomitant]
     Route: 058
  8. FERROUS FUMARATE [Concomitant]
     Route: 048

REACTIONS (1)
  - INFECTIOUS PERITONITIS [None]
